FAERS Safety Report 4401922-8 (Version None)
Quarter: 2004Q3

REPORT INFORMATION
  Report Type: 
  Country: None (occurrence: None)
  Receive Date: 20040714
  Receipt Date: 20040629
  Transmission Date: 20050211
  Serious: Yes (Hospitalization)
  Sender: FDA-Public Use
  Company Number: US_0407103957

PATIENT
  Age: 63 Year
  Sex: Male
  Weight: 59 kg

DRUGS (3)
  1. GEMCITABINE HYDROCHLORIDE-IV (GEMCITABINE) [Suspect]
     Indication: LEIOMYOSARCOMA
     Dosage: 675 MG/M2 OTHER
     Route: 050
     Dates: start: 20040525
  2. DOCETAXEL [Suspect]
     Indication: LEIOMYOSARCOMA
     Dosage: 75 MG/M2 OTHER
     Route: 050
     Dates: start: 20040601
  3. COUMADIN [Concomitant]

REACTIONS (2)
  - GASTRIC HAEMORRHAGE [None]
  - GINGIVAL BLEEDING [None]
